FAERS Safety Report 23970239 (Version 2)
Quarter: 2024Q3

REPORT INFORMATION
  Report Type: Spontaneous
  Country: JP (occurrence: JP)
  Receive Date: 20240613
  Receipt Date: 20240808
  Transmission Date: 20241017
  Serious: Yes (Other)
  Sender: UNKNOWN
  Company Number: JP-MTPC-MTPC2024-0012036

PATIENT
  Age: 75 Year
  Sex: Female

DRUGS (20)
  1. ADETPHOS [Suspect]
     Active Substance: ADENOSINE TRIPHOSPHATE
     Dosage: UNK
     Route: 048
     Dates: end: 20210521
  2. ADETPHOS [Suspect]
     Active Substance: ADENOSINE TRIPHOSPHATE
     Dosage: UNK
     Route: 048
  3. ATORVASTATIN [Suspect]
     Active Substance: ATORVASTATIN
     Dosage: UNK
     Route: 048
     Dates: end: 20210507
  4. CLOPIDOGREL [Suspect]
     Active Substance: CLOPIDOGREL BISULFATE
     Dosage: UNK
     Route: 048
     Dates: end: 20210507
  5. LICORICE ROOT EXTRACT\RHUBARB [Suspect]
     Active Substance: LICORICE ROOT EXTRACT\RHUBARB
     Dosage: UNK
     Route: 065
     Dates: end: 20210521
  6. DOMPERIDONE [Suspect]
     Active Substance: DOMPERIDONE
     Dosage: UNK
     Route: 048
     Dates: end: 20210507
  7. ICOSAPENT ETHYL [Suspect]
     Active Substance: ICOSAPENT ETHYL
     Route: 065
  8. ETIZOLAM [Suspect]
     Active Substance: ETIZOLAM
     Dosage: UNK
     Route: 048
     Dates: end: 20210521
  9. ETIZOLAM [Suspect]
     Active Substance: ETIZOLAM
     Dosage: UNK
     Route: 048
  10. METHYLCOBALAMIN [Suspect]
     Active Substance: METHYLCOBALAMIN
     Dosage: UNK
     Route: 048
     Dates: end: 20210521
  11. METHYLCOBALAMIN [Suspect]
     Active Substance: METHYLCOBALAMIN
     Dosage: UNK
     Route: 048
  12. CITICOLINE [Suspect]
     Active Substance: CITICOLINE
     Dosage: UNK
     Route: 065
     Dates: end: 20210507
  13. PRIMPERAN [Suspect]
     Active Substance: METOCLOPRAMIDE HYDROCHLORIDE
     Dosage: UNK
     Route: 051
     Dates: end: 20210507
  14. EDARAVONE [Suspect]
     Active Substance: EDARAVONE
     Indication: Lacunar infarction
     Dosage: 30 MILLIGRAM, BID
     Route: 041
     Dates: start: 20210430, end: 20210507
  15. RABEPRAZOLE SODIUM [Suspect]
     Active Substance: RABEPRAZOLE SODIUM
     Dosage: UNK
     Route: 048
     Dates: end: 20210507
  16. REBAMIPIDE [Suspect]
     Active Substance: REBAMIPIDE
     Dosage: UNK
     Route: 048
     Dates: end: 20210521
  17. NICORANDIL [Suspect]
     Active Substance: NICORANDIL
     Dosage: UNK
     Route: 048
     Dates: end: 20210521
  18. VONOPRAZAN FUMARATE [Suspect]
     Active Substance: VONOPRAZAN FUMARATE
     Dosage: UNK
     Route: 065
     Dates: end: 20210521
  19. HERBALS [Suspect]
     Active Substance: HERBALS
     Dosage: UNK
     Route: 048
     Dates: end: 20210521
  20. OZAGREL SODIUM [Suspect]
     Active Substance: OZAGREL SODIUM
     Dosage: UNK
     Route: 051
     Dates: end: 20210507

REACTIONS (1)
  - Neutrophil count decreased [Recovering/Resolving]

NARRATIVE: CASE EVENT DATE: 20210430
